FAERS Safety Report 24976141 (Version 1)
Quarter: 2025Q1

REPORT INFORMATION
  Report Type: Spontaneous
  Country: US (occurrence: US)
  Receive Date: 20250217
  Receipt Date: 20250217
  Transmission Date: 20250409
  Serious: Yes (Other)
  Sender: ALEXION PHARMACEUTICALS
  Company Number: US-AstraZeneca-CH-00804258A

PATIENT

DRUGS (1)
  1. SEROQUEL XR [Suspect]
     Active Substance: QUETIAPINE FUMARATE
     Route: 065

REACTIONS (5)
  - Diabetes mellitus [Unknown]
  - Weight increased [Unknown]
  - Visual impairment [Unknown]
  - Hypoaesthesia [Unknown]
  - Neuropathy peripheral [Unknown]
